FAERS Safety Report 9133687 (Version 1)
Quarter: 2013Q1

REPORT INFORMATION
  Report Type: Spontaneous
  Country: US (occurrence: US)
  Receive Date: 20130302
  Receipt Date: 20130302
  Transmission Date: 20140127
  Serious: Yes (Other)
  Sender: FDA-Public Use
  Company Number: US-ENDO PHARMACEUTICALS INC.-ZYDN20120001

PATIENT
  Age: 65 Year
  Sex: Male

DRUGS (1)
  1. ZYDONE [Suspect]
     Indication: BACK PAIN
     Dosage: 10MG/400MG
     Route: 048
     Dates: start: 2002, end: 2012

REACTIONS (4)
  - Drug abuse [Not Recovered/Not Resolved]
  - Drug screen positive [Unknown]
  - Withdrawal syndrome [Not Recovered/Not Resolved]
  - Drug ineffective [Recovered/Resolved]
